FAERS Safety Report 21927126 (Version 10)
Quarter: 2025Q3

REPORT INFORMATION
  Report Type: Report from Study
  Country: US (occurrence: US)
  Receive Date: 20230130
  Receipt Date: 20250715
  Transmission Date: 20251021
  Serious: Yes (Other)
  Sender: NOVARTIS
  Company Number: US-002147023-NVSC2023US019768

PATIENT
  Sex: Female

DRUGS (1)
  1. KESIMPTA [Suspect]
     Active Substance: OFATUMUMAB
     Indication: Relapsing multiple sclerosis
     Dosage: UNK, QMO
     Route: 058

REACTIONS (12)
  - Multiple sclerosis relapse [Recovering/Resolving]
  - Speech disorder [Unknown]
  - Gait disturbance [Recovering/Resolving]
  - Hypoaesthesia [Recovering/Resolving]
  - Pain [Unknown]
  - Eye disorder [Recovering/Resolving]
  - Neuropathy peripheral [Unknown]
  - Seizure [Unknown]
  - Band sensation [Unknown]
  - Aphasia [Unknown]
  - Epilepsy [Unknown]
  - Drug ineffective [Unknown]
